FAERS Safety Report 6151667-1 (Version None)
Quarter: 2009Q2

REPORT INFORMATION
  Report Type: 
  Country: None (occurrence: None)
  Receive Date: 20090410
  Receipt Date: 20090403
  Transmission Date: 20091009
  Serious: Yes (Death)
  Sender: FDA-Public Use
  Company Number: US-AVENTIS-200912880US

PATIENT
  Sex: Female

DRUGS (3)
  1. LANTUS [Suspect]
     Route: 058
     Dates: start: 20060101, end: 20090129
  2. LANTUS [Suspect]
     Dosage: DOSE: SLIDING SCALE
     Route: 058
     Dates: start: 20090129, end: 20090314
  3. OPTICLIK (INSULIN INJECTION PEN) [Suspect]
     Dates: start: 20060101, end: 20090129

REACTIONS (2)
  - HEPATIC CIRRHOSIS [None]
  - PNEUMONIA [None]
